FAERS Safety Report 10513082 (Version 4)
Quarter: 2014Q4

REPORT INFORMATION
  Report Type: Spontaneous
  Country: HU (occurrence: HU)
  Receive Date: 20141013
  Receipt Date: 20141112
  Transmission Date: 20150528
  Serious: Yes (Other)
  Sender: FDA-Public Use
  Company Number: HU-PFIZER INC-2014274472

PATIENT
  Age: 66 Year
  Sex: Male

DRUGS (1)
  1. CARDURA XL [Suspect]
     Active Substance: DOXAZOSIN MESYLATE
     Indication: HYPERTENSION
     Dosage: 4 MG, 1X/DAY
     Route: 048
     Dates: start: 201409

REACTIONS (5)
  - Limb injury [Recovered/Resolved]
  - Wrist fracture [Recovered/Resolved]
  - Wound [Recovered/Resolved]
  - Tenosynovitis [Recovered/Resolved]
  - Wound infection bacterial [Unknown]

NARRATIVE: CASE EVENT DATE: 2014
